FAERS Safety Report 11167031 (Version 1)
Quarter: 2015Q2

REPORT INFORMATION
  Report Type: Report from Study
  Country: FR (occurrence: None)
  Receive Date: 20150603
  Receipt Date: 20150603
  Transmission Date: 20150821
  Serious: Yes (Hospitalization)
  Sender: FDA-Public Use
  Company Number: 2015DEPFR00646

PATIENT
  Age: 60 Year
  Sex: Female

DRUGS (2)
  1. ENDOXAN (CYCLOPHOSPHAMIDE) [Suspect]
     Active Substance: CYCLOPHOSPHAMIDE
     Indication: METASTASES TO MENINGES
     Dates: start: 20150101, end: 20150203
  2. DEPOCYT [Suspect]
     Active Substance: CYTARABINE
     Indication: METASTASES TO MENINGES
     Route: 037
     Dates: start: 20141202

REACTIONS (15)
  - Hyperglycaemia [None]
  - Hyperthermia [None]
  - Anxiety [None]
  - C-reactive protein abnormal [None]
  - Pneumonia aspiration [None]
  - Constipation [None]
  - Headache [None]
  - Coma [None]
  - Restlessness [None]
  - Nausea [None]
  - Miosis [None]
  - Vomiting [None]
  - Urinary retention [None]
  - Somnolence [None]
  - Respiratory distress [None]

NARRATIVE: CASE EVENT DATE: 20150202
